FAERS Safety Report 6623773-6 (Version None)
Quarter: 2010Q1

REPORT INFORMATION
  Report Type: 
  Country: None (occurrence: None)
  Receive Date: 20100310
  Receipt Date: 20091118
  Transmission Date: 20100710
  Serious: No
  Sender: FDA-Public Use
  Company Number: US-BIOGENIDEC-2009BI037725

PATIENT
  Sex: Male

DRUGS (2)
  1. AVONEX [Suspect]
     Indication: MULTIPLE SCLEROSIS
     Route: 030
     Dates: start: 19960101, end: 20000101
  2. AVONEX [Suspect]
     Route: 030
     Dates: start: 20020101

REACTIONS (3)
  - DRUG SPECIFIC ANTIBODY PRESENT [None]
  - INFLUENZA [None]
  - MUSCLE SPASTICITY [None]
